FAERS Safety Report 5554101-5 (Version None)
Quarter: 2007Q4

REPORT INFORMATION
  Report Type: 
  Country: None (occurrence: None)
  Receive Date: 20071211
  Receipt Date: 20071128
  Transmission Date: 20080405
  Serious: Yes (Hospitalization)
  Sender: FDA-Public Use
  Company Number: 239015K07USA

PATIENT
  Age: 50 Year
  Sex: Male

DRUGS (1)
  1. REBIF [Suspect]
     Indication: MULTIPLE SCLEROSIS
     Dosage: 44 MCG, 3 IN 1 WEEKS, SUBCUTANEOUS
     Route: 058
     Dates: start: 20061103

REACTIONS (10)
  - ASTHENIA [None]
  - BALANCE DISORDER [None]
  - BURNING SENSATION [None]
  - CONDITION AGGRAVATED [None]
  - DISORIENTATION [None]
  - DISTURBANCE IN ATTENTION [None]
  - FALL [None]
  - FATIGUE [None]
  - MULTIPLE SCLEROSIS [None]
  - SPEECH DISORDER [None]
